FAERS Safety Report 6158385-4 (Version None)
Quarter: 2009Q2

REPORT INFORMATION
  Report Type: 
  Country: None (occurrence: None)
  Receive Date: 20090417
  Receipt Date: 20090413
  Transmission Date: 20091009
  Serious: No
  Sender: FDA-Public Use
  Company Number: US-B.I. PHARMACEUTICALS,INC./RIDGEFIELD-2009-BP-04648BP

PATIENT
  Sex: Female

DRUGS (1)
  1. ZANTAC 150 [Suspect]
     Indication: REFLUX OESOPHAGITIS
     Dosage: 600MG
     Route: 048
     Dates: start: 20090412, end: 20090412

REACTIONS (2)
  - DRUG INEFFECTIVE [None]
  - OVERDOSE [None]
